FAERS Safety Report 17758914 (Version 2)
Quarter: 2020Q2

REPORT INFORMATION
  Report Type: Spontaneous
  Country: CA (occurrence: CA)
  Receive Date: 20200508
  Receipt Date: 20200527
  Transmission Date: 20200714
  Serious: Yes (Other)
  Sender: FDA-Public Use
  Company Number: CA-ROCHE-1748937

PATIENT
  Age: 51 Year
  Sex: Female

DRUGS (20)
  1. METHOTREXATE SODIUM. [Suspect]
     Active Substance: METHOTREXATE SODIUM
     Indication: RHEUMATOID ARTHRITIS
     Route: 048
     Dates: start: 2000, end: 2015
  2. NEORAL [Suspect]
     Active Substance: CYCLOSPORINE
     Indication: RHEUMATOID ARTHRITIS
     Dosage: THERAPY DURATION 15 YEARS
     Route: 058
     Dates: start: 2000, end: 2015
  3. PLAQUENIL [Suspect]
     Active Substance: HYDROXYCHLOROQUINE SULFATE
     Dosage: THERAPY DURATION: 16.0 YEAR(S)
     Route: 048
  4. ORENCIA [Suspect]
     Active Substance: ABATACEPT
     Indication: RHEUMATOID ARTHRITIS
     Dosage: THERAPY DURATION: 10.0 MONTHS
     Route: 058
  5. ACTEMRA [Suspect]
     Active Substance: TOCILIZUMAB
     Indication: RHEUMATOID ARTHRITIS
     Dosage: THERAPY DURATION: 3 MONTHS
     Route: 042
     Dates: start: 201207, end: 201209
  6. NEORAL [Suspect]
     Active Substance: CYCLOSPORINE
     Route: 048
     Dates: start: 2000, end: 2015
  7. REMICADE [Suspect]
     Active Substance: INFLIXIMAB
     Indication: RHEUMATOID ARTHRITIS
     Dosage: THERAPY DURATION: 11 YEARS
     Route: 042
     Dates: start: 2002, end: 2013
  8. CYCLOSPORINE. [Suspect]
     Active Substance: CYCLOSPORINE
     Indication: RHEUMATOID ARTHRITIS
     Route: 065
  9. METHOTREXATE SODIUM. [Suspect]
     Active Substance: METHOTREXATE SODIUM
     Dosage: THERAPY DURATION: 16.0 YEAR(S)
     Route: 058
  10. PLAQUENIL [Suspect]
     Active Substance: HYDROXYCHLOROQUINE SULFATE
     Indication: PRODUCT USED FOR UNKNOWN INDICATION
     Route: 048
  11. ORENCIA [Suspect]
     Active Substance: ABATACEPT
     Dosage: THERAPY DURATION: 3.0 MONTH(S)
     Route: 058
  12. NEORAL [Suspect]
     Active Substance: CYCLOSPORINE
     Dosage: THERAPY DURATION: 16.0 YEAR(S)
     Route: 058
  13. ENBREL [Suspect]
     Active Substance: ETANERCEPT
     Indication: RHEUMATOID ARTHRITIS
     Route: 058
  14. ACTEMRA [Suspect]
     Active Substance: TOCILIZUMAB
     Dosage: THERAPY DURATION: 3 MONTHS
     Route: 042
  15. METHOTREXATE SODIUM. [Suspect]
     Active Substance: METHOTREXATE SODIUM
     Dosage: THERAPY DURATION: 16.0 YEAR(S)
     Route: 048
  16. PLAQUENIL [Suspect]
     Active Substance: HYDROXYCHLOROQUINE SULFATE
     Indication: RHEUMATOID ARTHRITIS
     Dosage: THERAPY DURATION: 15 YEARS
     Route: 058
     Dates: start: 2000, end: 2015
  17. LEFLUNOMIDE. [Suspect]
     Active Substance: LEFLUNOMIDE
     Indication: PRODUCT USED FOR UNKNOWN INDICATION
     Route: 065
  18. XELJANZ [Concomitant]
     Active Substance: TOFACITINIB CITRATE
     Indication: RHEUMATOID ARTHRITIS
     Route: 048
     Dates: start: 20150426
  19. ACTEMRA [Suspect]
     Active Substance: TOCILIZUMAB
     Dosage: THERAPY DURATION: 2 MONTHS
     Route: 042
  20. ENBREL [Suspect]
     Active Substance: ETANERCEPT
     Dosage: THERAPY DURATION: 3.0 MONTH(S)
     Route: 058

REACTIONS (6)
  - Drug ineffective [Unknown]
  - Rheumatoid arthritis [Unknown]
  - Joint swelling [Unknown]
  - C-reactive protein increased [Unknown]
  - Treatment failure [Unknown]
  - Contraindicated product administered [Unknown]
